FAERS Safety Report 25227269 (Version 2)
Quarter: 2025Q2

REPORT INFORMATION
  Report Type: Spontaneous
  Country: US (occurrence: US)
  Receive Date: 20250422
  Receipt Date: 20250429
  Transmission Date: 20250717
  Serious: No
  Sender: ALEXION PHARMACEUTICALS
  Company Number: US-AstraZeneca-CH-00852581AP

PATIENT

DRUGS (1)
  1. TEZSPIRE [Suspect]
     Active Substance: TEZEPELUMAB-EKKO
     Indication: Asthma
     Dosage: 210 MILLIGRAM, QMONTH
     Route: 065

REACTIONS (4)
  - Injection site haemorrhage [Unknown]
  - Device leakage [Unknown]
  - Injection site pain [Unknown]
  - Device delivery system issue [Unknown]
